FAERS Safety Report 6575837-3 (Version None)
Quarter: 2010Q1

REPORT INFORMATION
  Report Type: 
  Country: None (occurrence: None)
  Receive Date: 20100209
  Receipt Date: 20100108
  Transmission Date: 20100710
  Serious: Yes (Other)
  Sender: FDA-Public Use
  Company Number: US-BAYER-200917255BCC

PATIENT
  Age: 41 Year
  Sex: Female
  Weight: 90 kg

DRUGS (5)
  1. BACTINE LIQUID [Suspect]
     Indication: ACCIDENTAL EXPOSURE
     Route: 048
  2. OXYCONTIN [Concomitant]
     Route: 065
  3. DILAUDID [Concomitant]
     Route: 065
  4. STEROID [Concomitant]
     Route: 065
  5. ANTI VOMIT MEDICINE [Concomitant]
     Indication: VOMITING
     Route: 065

REACTIONS (1)
  - PARAESTHESIA ORAL [None]
